FAERS Safety Report 11318526 (Version 1)
Quarter: 2015Q3

REPORT INFORMATION
  Report Type: Spontaneous
  Country: FR (occurrence: FR)
  Receive Date: 20150729
  Receipt Date: 20150729
  Transmission Date: 20151125
  Serious: Yes (Other)
  Sender: FDA-Public Use
  Company Number: FR-ROCHE-1614314

PATIENT
  Age: 8 Year
  Sex: Male

DRUGS (4)
  1. PULMICORT TURBUHALER [Concomitant]
     Active Substance: BUDESONIDE
  2. ATROVENT [Concomitant]
     Active Substance: IPRATROPIUM BROMIDE
  3. XOLAIR [Suspect]
     Active Substance: OMALIZUMAB
     Indication: ASTHMA
     Route: 058
     Dates: start: 201210
  4. VENTOLINE [Concomitant]
     Active Substance: ALBUTEROL

REACTIONS (5)
  - Bronchial obstruction [Unknown]
  - Hypoxia [Unknown]
  - Pulmonary function test abnormal [Unknown]
  - Eosinophil count increased [Unknown]
  - Respiratory disorder [Not Recovered/Not Resolved]

NARRATIVE: CASE EVENT DATE: 201501
